FAERS Safety Report 18552385 (Version 2)
Quarter: 2021Q1

REPORT INFORMATION
  Report Type: Other
  Country: CA (occurrence: CA)
  Receive Date: 20201127
  Receipt Date: 20210212
  Transmission Date: 20210419
  Serious: No
  Sender: FDA-Public Use
  Company Number: CA-INTERCEPT-PM2020000793

PATIENT
  Sex: Female

DRUGS (3)
  1. OCALIVA [Suspect]
     Active Substance: OBETICHOLIC ACID
     Indication: PRIMARY BILIARY CHOLANGITIS
     Dosage: 5 MILLIGRAM, QD
     Route: 048
     Dates: start: 20191219
  2. URSO [Concomitant]
     Active Substance: URSODIOL
     Dosage: 500 MILLIGRAM, BID
  3. OCALIVA [Suspect]
     Active Substance: OBETICHOLIC ACID
     Dosage: UNK

REACTIONS (1)
  - Fatigue [Not Recovered/Not Resolved]
